FAERS Safety Report 11320645 (Version 1)
Quarter: 2015Q3

REPORT INFORMATION
  Report Type: Spontaneous
  Country: US (occurrence: US)
  Receive Date: 20150729
  Receipt Date: 20150729
  Transmission Date: 20151125
  Serious: Yes (Other)
  Sender: FDA-Public Use
  Company Number: US-ELI_LILLY_AND_COMPANY-US201507007727

PATIENT
  Age: 50 Year
  Sex: Female
  Weight: 59 kg

DRUGS (1)
  1. HUMALOG [Suspect]
     Active Substance: INSULIN LISPRO
     Indication: PRODUCT USED FOR UNKNOWN INDICATION
     Route: 058

REACTIONS (4)
  - Nausea [Unknown]
  - Thirst [Unknown]
  - Blood glucose increased [Unknown]
  - Vomiting [Unknown]

NARRATIVE: CASE EVENT DATE: 20150718
